FAERS Safety Report 4327840-1 (Version None)
Quarter: 2004Q1

REPORT INFORMATION
  Report Type: 
  Country: None (occurrence: None)
  Receive Date: 20040325
  Receipt Date: 20040317
  Transmission Date: 20041129
  Serious: Yes (Death, Hospitalization, Other)
  Sender: FDA-Public Use
  Company Number: FR-JNJFOC-20031204413

PATIENT
  Age: 70 Year
  Sex: Female
  Weight: 79 kg

DRUGS (4)
  1. DOXORUBICIN HCL [Suspect]
     Indication: OVARIAN CANCER
     Dosage: 95 MG, INTRAVENOUS
     Route: 042
     Dates: start: 20030715, end: 20030922
  2. RADIATION THERAPY (OTHER DIAGNOSTIC AGENTS) [Suspect]
     Indication: OVARIAN CANCER
  3. CELECTOL (CELOPROLOL) TABLETS [Concomitant]
  4. TRAMADOL HCL [Concomitant]

REACTIONS (22)
  - ACUTE RESPIRATORY DISTRESS SYNDROME [None]
  - BRONCHOPNEUMOPATHY [None]
  - HAEMODYNAMIC INSTABILITY [None]
  - HYPOXIA [None]
  - LUNG DISORDER [None]
  - LYMPHOCYTIC INFILTRATION [None]
  - LYMPHOCYTOSIS [None]
  - METAPLASIA [None]
  - MULTI-ORGAN FAILURE [None]
  - PLEURAL ADHESION [None]
  - PNEUMOTHORAX [None]
  - PULMONARY CALCIFICATION [None]
  - PULMONARY EMBOLISM [None]
  - PULMONARY FIBROSIS [None]
  - PULMONARY HAEMORRHAGE [None]
  - RASH PUSTULAR [None]
  - RENAL FAILURE [None]
  - RESPIRATORY ACIDOSIS [None]
  - SHOCK [None]
  - TOXIC EPIDERMAL NECROLYSIS [None]
  - TOXIC SKIN ERUPTION [None]
  - TUBERCULOSIS [None]
